FAERS Safety Report 7445091-9 (Version None)
Quarter: 2011Q2

REPORT INFORMATION
  Report Type: 
  Country: None (occurrence: None)
  Receive Date: 20110429
  Receipt Date: 20071126
  Transmission Date: 20111010
  Serious: Yes (Death, Life-Threatening, Hospitalization, Other)
  Sender: FDA-Public Use
  Company Number: US-BAYER-200714784NA

PATIENT
  Age: 73 Year
  Sex: Female
  Weight: 74.83 kg

DRUGS (17)
  1. METFORMIN [Concomitant]
     Dosage: 500MG TWICE DAILY
     Route: 048
     Dates: start: 20040809
  2. ALLOPURINOL [Concomitant]
     Dosage: 100 MG, BID
     Route: 048
     Dates: start: 19971104
  3. FOLTX [Concomitant]
     Dosage: 1 DAILY
     Route: 048
     Dates: start: 20050324
  4. LASIX [Concomitant]
     Dosage: UNK
     Dates: start: 20050804
  5. BUMEX [Concomitant]
     Dosage: 20 UNK, UNK
     Route: 042
     Dates: start: 20050804, end: 20050804
  6. TRASYLOL [Suspect]
     Indication: CORONARY ARTERY BYPASS
     Dosage: 1 ML, TEST DOSE
     Dates: start: 20050803, end: 20050803
  7. ATENOLOL [Concomitant]
     Dosage: 100 MG, QD
     Route: 048
     Dates: start: 19971104
  8. CELEBREX [Concomitant]
     Dosage: 200 MG, QD
     Route: 048
     Dates: start: 20021220
  9. DILTIAZEM [Concomitant]
  10. MAVIK [Concomitant]
     Dosage: 400MG DAILY
     Dates: start: 20040129
  11. WARFARIN [Concomitant]
     Dosage: 1 MG, QD
     Route: 048
     Dates: start: 20041008
  12. ANCEF [Concomitant]
     Dosage: 2 G, UNK
     Dates: start: 20050804, end: 20050804
  13. INSULIN [Concomitant]
     Dosage: 20 UNK, UNK
     Dates: start: 20050804
  14. TRASYLOL [Suspect]
     Indication: AORTIC ANEURYSM REPAIR
     Dosage: 50 ML/HOUR DRIP
     Dates: start: 20050803, end: 20050803
  15. HYDRALAZINE HCL [Concomitant]
     Dosage: UNK
     Dates: start: 20050804
  16. LIPITOR [Concomitant]
     Dosage: 20 MG, QD
     Route: 048
     Dates: start: 20021220
  17. TRASYLOL [Suspect]
     Indication: INTRA-THORACIC AORTIC ANEURYSM REPAIR
     Dosage: 100 ML LOADING DOSE
     Dates: start: 20050803, end: 20050803

REACTIONS (8)
  - DEATH [None]
  - ANXIETY [None]
  - UNEVALUABLE EVENT [None]
  - INJURY [None]
  - PSYCHOGENIC PAIN DISORDER [None]
  - CEREBROVASCULAR ACCIDENT [None]
  - RENAL FAILURE [None]
  - PAIN [None]
